FAERS Safety Report 10575253 (Version 2)
Quarter: 2014Q4

REPORT INFORMATION
  Report Type: Report from Study
  Country: US (occurrence: US)
  Receive Date: 20141111
  Receipt Date: 20141209
  Transmission Date: 20150529
  Serious: Yes (Hospitalization)
  Sender: FDA-Public Use
  Company Number: US-AMGEN-USASL2014085984

PATIENT
  Age: 57 Year
  Sex: Female

DRUGS (1)
  1. XGEVA [Suspect]
     Active Substance: DENOSUMAB
     Indication: BREAST CANCER METASTATIC
     Dosage: ONCE EVERY SIX TO EIGHT WEEKS
     Route: 065

REACTIONS (2)
  - Hepatic failure [Unknown]
  - Malaise [Unknown]

NARRATIVE: CASE EVENT DATE: 201410
